FAERS Safety Report 9153912 (Version 1)
Quarter: 2013Q1

REPORT INFORMATION
  Report Type: Spontaneous
  Country: US (occurrence: None)
  Receive Date: 20130308
  Receipt Date: 20130308
  Transmission Date: 20140127
  Serious: No
  Sender: FDA-Public Use
  Company Number: None

PATIENT
  Age: 72 None
  Sex: Male
  Weight: 72.7 kg

DRUGS (1)
  1. PROAIR HFA [Suspect]
     Indication: ASTHMA
     Dosage: PROAIR HFA Q6H PRN ROUTE 054
     Dates: start: 2006, end: 2011

REACTIONS (1)
  - Device ineffective [None]
